FAERS Safety Report 11127961 (Version 2)
Quarter: 2015Q2

REPORT INFORMATION
  Report Type: Report from Study
  Country: CA (occurrence: None)
  Receive Date: 20150519
  Receipt Date: 20150603
  Transmission Date: 20150821
  Serious: Yes (Hospitalization)
  Sender: FDA-Public Use
  Company Number: CA-MDCO-15-00249

PATIENT
  Age: 81 Year
  Sex: Male
  Weight: 77 kg

DRUGS (12)
  1. TAMSULOSIN [Concomitant]
     Active Substance: TAMSULOSIN
  2. ASPIRIN. [Concomitant]
     Active Substance: ASPIRIN
  3. CALCIUM CARBONATE. [Concomitant]
     Active Substance: CALCIUM CARBONATE
  4. PANTOPRAZOLE [Concomitant]
     Active Substance: PANTOPRAZOLE SODIUM
  5. IVIG (IMMUNOGLOBULIN HUMAN NORMAL) [Concomitant]
  6. BIVALIRUDIN [Suspect]
     Active Substance: BIVALIRUDIN
     Indication: AORTIC VALVE REPLACEMENT
     Route: 013
     Dates: start: 20150430, end: 20150430
  7. VITAMIN D (ERGOCALCIFEROL) [Concomitant]
     Active Substance: ERGOCALCIFEROL
  8. HEPARIN [Concomitant]
     Active Substance: HEPARIN SODIUM
  9. PYRIDOSTIGMINE BROMIDE. [Concomitant]
     Active Substance: PYRIDOSTIGMINE BROMIDE
  10. METOPROLOL [Concomitant]
     Active Substance: METOPROLOL
  11. CLOPIDOGREL [Concomitant]
     Active Substance: CLOPIDOGREL BISULFATE
  12. ATORVASTATIN [Concomitant]
     Active Substance: ATORVASTATIN

REACTIONS (4)
  - Femoral artery dissection [None]
  - Haemoglobin decreased [None]
  - Arterial injury [None]
  - Post procedural haemorrhage [None]

NARRATIVE: CASE EVENT DATE: 20150430
